FAERS Safety Report 22034505 (Version 1)
Quarter: 2023Q1

REPORT INFORMATION
  Report Type: Spontaneous
  Country: US (occurrence: US)
  Receive Date: 20230224
  Receipt Date: 20230224
  Transmission Date: 20230418
  Serious: Yes (Hospitalization, Other)
  Sender: FDA-Public Use
  Company Number: US-SA-SAC20230223001275

PATIENT
  Age: 82 Year
  Sex: Female

DRUGS (15)
  1. DUPIXENT [Suspect]
     Active Substance: DUPILUMAB
     Indication: Dermatitis atopic
     Dosage: 300MG QOW
     Route: 058
     Dates: start: 20221213
  2. ABILIFY [Concomitant]
     Active Substance: ARIPIPRAZOLE
  3. ASPIRIN [Concomitant]
     Active Substance: ASPIRIN
  4. BUDESONIDE [Concomitant]
     Active Substance: BUDESONIDE
  5. CARVEDILOL [Concomitant]
     Active Substance: CARVEDILOL
  6. CLOPIDOGREL [Concomitant]
     Active Substance: CLOPIDOGREL BISULFATE
  7. MULTAQ [Concomitant]
     Active Substance: DRONEDARONE
  8. OXYBUTYNIN [Concomitant]
     Active Substance: OXYBUTYNIN
  9. PANTOPRAZOLE [Concomitant]
     Active Substance: PANTOPRAZOLE
  10. PRAVASTATIN [Concomitant]
     Active Substance: PRAVASTATIN
  11. SERTRALINE [Concomitant]
     Active Substance: SERTRALINE HYDROCHLORIDE
  12. TAMSULOSIN HYDROCHLORIDE [Concomitant]
     Active Substance: TAMSULOSIN HYDROCHLORIDE
  13. TYLENOL [Concomitant]
     Active Substance: ACETAMINOPHEN
  14. VITAMIN D NOS [Concomitant]
     Active Substance: VITAMIN D NOS
  15. POTASSIUM [Concomitant]
     Active Substance: POTASSIUM

REACTIONS (2)
  - Cellulitis [Not Recovered/Not Resolved]
  - Thinking abnormal [Not Recovered/Not Resolved]
